FAERS Safety Report 7850757-2 (Version None)
Quarter: 2011Q4

REPORT INFORMATION
  Report Type: 
  Country: None (occurrence: None)
  Receive Date: 20111024
  Receipt Date: 20111010
  Transmission Date: 20120403
  Serious: Yes (Other)
  Sender: FDA-Public Use
  Company Number: TPA2011A06593

PATIENT
  Age: 79 Year
  Sex: Male

DRUGS (5)
  1. AMARYL [Concomitant]
  2. ACTOS [Suspect]
     Indication: TYPE 2 DIABETES MELLITUS
     Dosage: 15 MG, 1 IN 1 D, PER ORAL; 30 MG, 1 IN 1 D, PER ORAL
     Route: 048
     Dates: start: 20060201
  3. ACTOS [Suspect]
     Indication: TYPE 2 DIABETES MELLITUS
     Dosage: 15 MG, 1 IN 1 D, PER ORAL; 30 MG, 1 IN 1 D, PER ORAL
     Route: 048
     Dates: start: 20110101
  4. AMLODIPINE [Concomitant]
  5. SIMVASTATIN [Concomitant]

REACTIONS (1)
  - BLADDER CANCER [None]
